FAERS Safety Report 20707493 (Version 2)
Quarter: 2022Q2

REPORT INFORMATION
  Report Type: Spontaneous
  Country: GR (occurrence: GR)
  Receive Date: 20220413
  Receipt Date: 20220426
  Transmission Date: 20220721
  Serious: Yes (Death, Hospitalization, Other)
  Sender: FDA-Public Use
  Company Number: GR-TEVA-2022-GR-2025806

PATIENT
  Age: 8 Decade
  Sex: Female

DRUGS (4)
  1. METHOTREXATE [Suspect]
     Active Substance: METHOTREXATE
     Indication: Mixed connective tissue disease
     Route: 065
     Dates: start: 2018, end: 2019
  2. RITUXIMAB [Suspect]
     Active Substance: RITUXIMAB
     Indication: Mixed connective tissue disease
     Dosage: REPEATED EVERY 6 MONTHS
     Route: 050
     Dates: start: 201807
  3. RITUXIMAB [Suspect]
     Active Substance: RITUXIMAB
     Route: 050
  4. METHYLPREDNISOLONE [Concomitant]
     Active Substance: METHYLPREDNISOLONE
     Indication: Mixed connective tissue disease
     Route: 065

REACTIONS (4)
  - COVID-19 pneumonia [Fatal]
  - Multiple organ dysfunction syndrome [Fatal]
  - Respiratory failure [Fatal]
  - Hepatotoxicity [Unknown]

NARRATIVE: CASE EVENT DATE: 20190101
